FAERS Safety Report 8113479-9 (Version None)
Quarter: 2011Q4

REPORT INFORMATION
  Report Type: 
  Country: None (occurrence: None)
  Receive Date: 20111227
  Receipt Date: 20111115
  Transmission Date: 20120403
  Serious: Yes (Other)
  Sender: FDA-Public Use
  Company Number: PHEH2011US07958

PATIENT
  Age: 52 Year
  Sex: Female

DRUGS (4)
  1. DIGOXIN [Concomitant]
  2. ATENOLOL CHLORTHIALIDONE (ATENOLOL, CHLORTALIDONE) [Concomitant]
  3. GILENYA [Suspect]
     Dosage: 0.5 MG, QD, ORAL ; 0.5 MG, QD, ORAL
     Route: 048
     Dates: start: 20111026
  4. GILENYA [Suspect]
     Dosage: 0.5 MG, QD, ORAL ; 0.5 MG, QD, ORAL
     Route: 048
     Dates: start: 20111114

REACTIONS (3)
  - BRADYCARDIA [None]
  - SOMNOLENCE [None]
  - FATIGUE [None]
